FAERS Safety Report 4421485-0 (Version None)
Quarter: 2004Q3

REPORT INFORMATION
  Report Type: 
  Country: None (occurrence: None)
  Receive Date: 20040712
  Receipt Date: 20040512
  Transmission Date: 20050211
  Serious: No
  Sender: FDA-Public Use
  Company Number: 2004-05-1238

PATIENT
  Age: 69 Year
  Sex: Female
  Weight: 50.3493 kg

DRUGS (3)
  1. CLARINEX [Suspect]
     Indication: HYPERSENSITIVITY
     Dosage: 1 TAB QD ORAL
     Route: 048
  2. HORMONES (NOS) [Concomitant]
  3. THYROID TAB [Concomitant]

REACTIONS (3)
  - DRY MOUTH [None]
  - GASTROINTESTINAL DISORDER [None]
  - HEADACHE [None]
